FAERS Safety Report 6244917-4 (Version None)
Quarter: 2009Q2

REPORT INFORMATION
  Report Type: 
  Country: None (occurrence: None)
  Receive Date: 20090625
  Receipt Date: 20090616
  Transmission Date: 20091009
  Serious: Yes (Hospitalization)
  Sender: FDA-Public Use
  Company Number: PHHO2008US15255

PATIENT
  Sex: Male
  Weight: 83 kg

DRUGS (5)
  1. RAD 666 RAD+TAB [Suspect]
     Indication: RENAL CANCER
     Dosage: 10 MG, QD
     Route: 048
     Dates: start: 20080920, end: 20081212
  2. RAD 666 RAD+TAB [Suspect]
     Dosage: NO TREATMENT
     Dates: start: 20081213, end: 20081222
  3. RAD 666 RAD+TAB [Suspect]
     Dosage: 10 MG, QD
     Route: 048
     Dates: start: 20081223
  4. REGLAN [Concomitant]
  5. KYTRIL [Concomitant]

REACTIONS (7)
  - DECREASED APPETITE [None]
  - DIARRHOEA [None]
  - GASTROINTESTINAL DISORDER [None]
  - GASTROINTESTINAL INFECTION [None]
  - PLEURAL EFFUSION [None]
  - PNEUMONIA [None]
  - VOMITING [None]
